FAERS Safety Report 11523138 (Version 1)
Quarter: 2015Q3

REPORT INFORMATION
  Report Type: Spontaneous
  Country: US (occurrence: US)
  Receive Date: 20150918
  Receipt Date: 20150918
  Transmission Date: 20151125
  Serious: No
  Sender: FDA-Public Use
  Company Number: US-ROCHE-740892

PATIENT
  Age: 49 Year
  Sex: Male

DRUGS (3)
  1. PEGASYS [Suspect]
     Active Substance: PEGINTERFERON ALFA-2A
     Indication: HEPATITIS C
     Route: 058
  2. COPEGUS [Suspect]
     Active Substance: RIBAVIRIN
     Route: 065
  3. COPEGUS [Suspect]
     Active Substance: RIBAVIRIN
     Indication: HEPATITIS C
     Dosage: DIVIDED DOSES
     Route: 065
     Dates: start: 20101010, end: 20101115

REACTIONS (10)
  - Pyrexia [Not Recovered/Not Resolved]
  - Productive cough [Not Recovered/Not Resolved]
  - Rhinorrhoea [Not Recovered/Not Resolved]
  - Anaemia [Unknown]
  - Contusion [Not Recovered/Not Resolved]
  - Nasopharyngitis [Not Recovered/Not Resolved]
  - Constipation [Not Recovered/Not Resolved]
  - Oropharyngeal pain [Not Recovered/Not Resolved]
  - Headache [Not Recovered/Not Resolved]
  - Injection site bruising [Unknown]

NARRATIVE: CASE EVENT DATE: 20101106
